FAERS Safety Report 5268550-6 (Version None)
Quarter: 2007Q1

REPORT INFORMATION
  Report Type: 
  Country: None (occurrence: None)
  Receive Date: 20070313
  Receipt Date: 20070228
  Transmission Date: 20070707
  Serious: Yes (Other)
  Sender: FDA-Public Use
  Company Number: 2007SP004032

PATIENT
  Age: 10 Year
  Sex: Male

DRUGS (2)
  1. CLARITIN-D 24 HOUR [Suspect]
     Indication: DRUG USE FOR UNKNOWN INDICATION
     Dosage: 1 DF; QD;PO
     Route: 048
     Dates: start: 19990101, end: 20020101
  2. ADDERALL 20 [Suspect]
     Indication: ATTENTION DEFICIT/HYPERACTIVITY DISORDER
     Dosage: 20 MG;TID;PO
     Route: 048
     Dates: start: 20010101, end: 20030101

REACTIONS (6)
  - AGGRESSION [None]
  - AGITATION [None]
  - DRUG INTERACTION [None]
  - INSOMNIA [None]
  - PHYSICAL ASSAULT [None]
  - WEIGHT DECREASED [None]
